FAERS Safety Report 18540441 (Version 2)
Quarter: 2021Q2

REPORT INFORMATION
  Report Type: Spontaneous
  Country: US (occurrence: US)
  Receive Date: 20201124
  Receipt Date: 20210416
  Transmission Date: 20210717
  Serious: No
  Sender: FDA-Public Use
  Company Number: US-PFIZER INC-2019491399

PATIENT
  Age: 35 Year

DRUGS (1)
  1. PRISTIQ EXTENDED?RELEASE [Suspect]
     Active Substance: DESVENLAFAXINE SUCCINATE
     Dosage: 1 AND 1/2, ONCE DAILY
     Route: 048

REACTIONS (2)
  - Product prescribing error [Unknown]
  - COVID-19 [Unknown]
